FAERS Safety Report 21306040 (Version 1)
Quarter: 2022Q3

REPORT INFORMATION
  Report Type: Spontaneous
  Country: RO (occurrence: RO)
  Receive Date: 20220908
  Receipt Date: 20220908
  Transmission Date: 20221027
  Serious: Yes (Other)
  Sender: FDA-Public Use
  Company Number: RO-SUN PHARMACEUTICAL INDUSTRIES LTD-2022RR-353300

PATIENT
  Age: 65 Year
  Sex: Female

DRUGS (6)
  1. SIMVASTATIN [Suspect]
     Active Substance: SIMVASTATIN
     Indication: Acute coronary syndrome
     Dosage: 80 MILLIGRAM, DAILY, HIGH DOSES
     Route: 065
  2. ROSUVASTATIN [Suspect]
     Active Substance: ROSUVASTATIN
     Indication: Lipids increased
     Dosage: UNK
     Route: 065
  3. EZETIMIBE [Suspect]
     Active Substance: EZETIMIBE
     Indication: Lipids increased
     Dosage: UNK
     Route: 065
  4. METHYLPREDNISOLONE [Concomitant]
     Active Substance: METHYLPREDNISOLONE
     Indication: Polymyositis
     Dosage: 0.8 MILLIGRAM/KILOGRAM, UNK
     Route: 065
  5. METHOTREXATE [Concomitant]
     Active Substance: METHOTREXATE
     Indication: Polymyositis
     Dosage: 10 MILLIGRAM, WEEKLY
     Route: 065
  6. METHOTREXATE [Concomitant]
     Active Substance: METHOTREXATE
     Dosage: 20 MILLIGRAM, WEEKLY
     Route: 065

REACTIONS (3)
  - Myalgia [Not Recovered/Not Resolved]
  - Blood creatine phosphokinase increased [Not Recovered/Not Resolved]
  - Polymyositis [Not Recovered/Not Resolved]
